FAERS Safety Report 24785021 (Version 1)
Quarter: 2024Q4

REPORT INFORMATION
  Report Type: Spontaneous
  Country: ES (occurrence: ES)
  Receive Date: 20241228
  Receipt Date: 20241228
  Transmission Date: 20250115
  Serious: Yes (Other)
  Sender: AMGEN
  Company Number: ES-AMGEN-ESPSP2024251255

PATIENT
  Age: 38 Year
  Sex: Male

DRUGS (11)
  1. ARANESP [Suspect]
     Active Substance: DARBEPOETIN ALFA
     Indication: Haemoglobin decreased
     Dosage: 50 MICROGRAM, QWK
     Route: 065
  2. TACROLIMUS [Concomitant]
     Active Substance: TACROLIMUS
     Indication: HIV infection
     Dosage: 0.05 MG/KG, BID
  3. TACROLIMUS [Concomitant]
     Active Substance: TACROLIMUS
     Dosage: BETWEEN 10-15 NG/ML
  4. TACROLIMUS [Concomitant]
     Active Substance: TACROLIMUS
     Dosage: BETWEEN 08-12 NG/ML
  5. RIBAVIRIN [Concomitant]
     Active Substance: RIBAVIRIN
     Indication: HIV infection
     Dosage: 800 MILLIGRAM, QD
     Route: 065
  6. RIBAVIRIN [Concomitant]
     Active Substance: RIBAVIRIN
     Dosage: 600 MILLIGRAM, QD
     Route: 065
  7. LAMIVUDINE [Concomitant]
     Active Substance: LAMIVUDINE
     Indication: HIV infection
  8. TENOFOVIR [Concomitant]
     Active Substance: TENOFOVIR
     Indication: HIV infection
  9. EFAVIRENZ [Concomitant]
     Active Substance: EFAVIRENZ
     Indication: HIV infection
  10. BASILIXIMAB [Concomitant]
     Active Substance: BASILIXIMAB
     Indication: HIV infection
  11. MYCOPHENOLATE MOFETIL [Concomitant]
     Active Substance: MYCOPHENOLATE MOFETIL
     Indication: HIV infection

REACTIONS (9)
  - Pneumonia bacterial [Recovered/Resolved]
  - Hepatitis chronic active [Unknown]
  - Liver transplant rejection [Recovered/Resolved]
  - Lipodystrophy acquired [Unknown]
  - Obesity [Unknown]
  - Influenza like illness [Unknown]
  - Anaemia [Unknown]
  - Depression [Unknown]
  - Hypertension [Unknown]
